FAERS Safety Report 5748796-0 (Version None)
Quarter: 2008Q2

REPORT INFORMATION
  Report Type: 
  Country: None (occurrence: None)
  Receive Date: 20080512
  Receipt Date: 20080506
  Transmission Date: 20081010
  Serious: Yes (Death, Life-Threatening, Other)
  Sender: FDA-Public Use
  Company Number: 2008001072

PATIENT
  Age: 78 Year
  Sex: Female

DRUGS (5)
  1. ERLOTINIB (ERLOTINIB) (TABLET) (ERLOTINIB) [Suspect]
     Indication: LUNG ADENOCARCINOMA
     Dosage: 150 MG, QD, ORAL
     Route: 048
     Dates: start: 20080301, end: 20080310
  2. SOLU-MEDROL [Suspect]
     Indication: LUNG ADENOCARCINOMA
     Dosage: INTRAVENOUS
     Route: 042
  3. BETAMETHASONE [Concomitant]
  4. FAMOTIDINE [Concomitant]
  5. DEPAS (ETIZOLAM) [Concomitant]

REACTIONS (11)
  - ANOREXIA [None]
  - CACHEXIA [None]
  - CONDITION AGGRAVATED [None]
  - DISEASE COMPLICATION [None]
  - DISEASE PROGRESSION [None]
  - EATING DISORDER [None]
  - GASTRODUODENAL ULCER [None]
  - GASTROINTESTINAL OEDEMA [None]
  - GENERAL PHYSICAL HEALTH DETERIORATION [None]
  - HYPOALBUMINAEMIA [None]
  - MALNUTRITION [None]
